FAERS Safety Report 4570210-1 (Version None)
Quarter: 2005Q1

REPORT INFORMATION
  Report Type: 
  Country: None (occurrence: None)
  Receive Date: 20050202
  Receipt Date: 20050120
  Transmission Date: 20050727
  Serious: Yes (Other)
  Sender: FDA-Public Use
  Company Number: 2004119580

PATIENT
  Sex: Female

DRUGS (5)
  1. SULPERAZON (SULBACTAM, CEFOPERAZONE) [Suspect]
     Indication: ILL-DEFINED DISORDER
     Dosage: INTRAVENOUS
     Route: 042
     Dates: end: 20041227
  2. FAMOTIDINE [Concomitant]
  3. ULINASTATIN (ULINASTATIN) [Concomitant]
  4. ATROPINE [Concomitant]
  5. GABEXATE MESILATE (GABEXATE MESILATE) [Concomitant]

REACTIONS (3)
  - ANAPHYLACTIC SHOCK [None]
  - DYSPNOEA [None]
  - OXYGEN SATURATION DECREASED [None]
